FAERS Safety Report 6911285-1 (Version None)
Quarter: 2010Q3

REPORT INFORMATION
  Report Type: 
  Country: None (occurrence: None)
  Receive Date: 20100806
  Receipt Date: 20100730
  Transmission Date: 20110219
  Serious: Yes (Other)
  Sender: FDA-Public Use
  Company Number: PHHY2010FR35623

PATIENT
  Sex: Female
  Weight: 62 kg

DRUGS (2)
  1. SANDOSTATIN [Suspect]
     Indication: ACROMEGALY
     Dosage: 200 MICROG DAILY WITH A PUMP
     Dates: start: 19920101
  2. SANDOSTATIN [Suspect]
     Dosage: 300 MICROG DAILY WITH A PUMP
     Dates: start: 19930701

REACTIONS (5)
  - CAESAREAN SECTION [None]
  - DRUG EXPOSURE DURING PREGNANCY [None]
  - NEOPLASM PROGRESSION [None]
  - NORMAL NEWBORN [None]
  - VISUAL FIELD DEFECT [None]
